FAERS Safety Report 4387936-5 (Version None)
Quarter: 2004Q2

REPORT INFORMATION
  Report Type: 
  Country: None (occurrence: None)
  Receive Date: 20040630
  Receipt Date: 20040617
  Transmission Date: 20050107
  Serious: Yes (Hospitalization)
  Sender: FDA-Public Use
  Company Number: JP-MERCK-0406USA01982

PATIENT
  Sex: Male

DRUGS (3)
  1. BENZBROMARONE [Suspect]
     Route: 065
  2. BERAPROST SODIUM [Concomitant]
     Route: 065
  3. SINGULAIR [Suspect]
     Route: 048
     Dates: start: 20040401

REACTIONS (1)
  - HAEMOLYTIC URAEMIC SYNDROME [None]
